FAERS Safety Report 6946144-1 (Version None)
Quarter: 2010Q3

REPORT INFORMATION
  Report Type: 
  Country: None (occurrence: None)
  Receive Date: 20100827
  Receipt Date: 20100821
  Transmission Date: 20110219
  Serious: Yes (Death, Hospitalization, Other)
  Sender: FDA-Public Use
  Company Number: IN-ELI_LILLY_AND_COMPANY-IN201008006243

PATIENT
  Age: 50 Year
  Sex: Female

DRUGS (1)
  1. XIGRIS [Suspect]
     Indication: H1N1 INFLUENZA
     Dates: start: 20100805

REACTIONS (3)
  - CATHETER SITE HAEMORRHAGE [None]
  - HAEMORRHAGE INTRACRANIAL [None]
  - LOSS OF CONSCIOUSNESS [None]
